FAERS Safety Report 8777491 (Version 1)
Quarter: 2012Q4

REPORT INFORMATION
  Report Type: 
  Country: US (occurrence: US)
  Receive Date: 20120910
  Receipt Date: 20120910
  Transmission Date: 20130627
  Serious: Yes (Other)
  Sender: FDA-Public Use
  Company Number: US-CELGENEUS-163-21880-12090335

PATIENT
  Sex: Female

DRUGS (2)
  1. REVLIMID [Suspect]
     Indication: MDS
     Dosage: 5 Milligram
     Route: 048
     Dates: start: 20120618
  2. BLOOD TRANSFUSION [Concomitant]
     Indication: DRUG USE FOR UNKNOWN INDICATION
     Route: 041
     Dates: start: 201208, end: 201208

REACTIONS (3)
  - Haemorrhagic diathesis [Unknown]
  - Contusion [Unknown]
  - Nausea [Unknown]
